FAERS Safety Report 22979847 (Version 4)
Quarter: 2023Q4

REPORT INFORMATION
  Report Type: Spontaneous
  Country: US (occurrence: US)
  Receive Date: 20230925
  Receipt Date: 20231115
  Transmission Date: 20240109
  Serious: No
  Sender: FDA-Public Use
  Company Number: US-BIOGEN-2023BI01227010

PATIENT
  Age: 45 Year
  Sex: Female

DRUGS (2)
  1. VUMERITY [Suspect]
     Active Substance: DIROXIMEL FUMARATE
     Indication: Multiple sclerosis
     Route: 050
     Dates: start: 20230901, end: 20230919
  2. VUMERITY [Suspect]
     Active Substance: DIROXIMEL FUMARATE
     Dosage: STARING DOSE
     Route: 050
     Dates: start: 202308, end: 202309

REACTIONS (7)
  - Fatigue [Unknown]
  - Vision blurred [Unknown]
  - Musculoskeletal disorder [Unknown]
  - Speech disorder [Unknown]
  - Eye disorder [Unknown]
  - Influenza [Unknown]
  - Hypersensitivity [Recovered/Resolved]

NARRATIVE: CASE EVENT DATE: 20230801
